FAERS Safety Report 5058718-6 (Version None)
Quarter: 2006Q3

REPORT INFORMATION
  Report Type: 
  Country: None (occurrence: None)
  Receive Date: 20060721
  Receipt Date: 20051007
  Transmission Date: 20061208
  Serious: No
  Sender: FDA-Public Use
  Company Number: US-AMGEN-US153438

PATIENT
  Sex: Male

DRUGS (5)
  1. EPOGEN [Suspect]
     Indication: ANAEMIA OF MALIGNANT DISEASE
     Route: 058
     Dates: start: 20040101
  2. MEDICINALPRODUCT NOT SPECIFIED BY SENDER [Concomitant]
     Route: 065
  3. MEDICINALPRODUCT NOT SPECIFIED BY SENDER [Concomitant]
     Route: 065
  4. MEDICINALPRODUCT NOT SPECIFIED BY SENDER [Concomitant]
     Route: 065
  5. MEDICINALPRODUCT NOT SPECIFIED BY SENDER [Concomitant]
     Route: 065

REACTIONS (5)
  - ARTHRALGIA [None]
  - ASTHENIA [None]
  - FATIGUE [None]
  - MYALGIA [None]
  - PYREXIA [None]
